FAERS Safety Report 9406850 (Version 1)
Quarter: 2013Q3

REPORT INFORMATION
  Report Type: Report from Study
  Country: BD (occurrence: BD)
  Receive Date: 20130718
  Receipt Date: 20130718
  Transmission Date: 20140515
  Serious: Yes (Death, Hospitalization)
  Sender: FDA-Public Use
  Company Number: PHHY2013BD075306

PATIENT
  Age: 72 Year
  Sex: Male

DRUGS (4)
  1. EXELON [Suspect]
     Indication: DEMENTIA
     Dosage: 1.5 MG, DAILY
     Route: 048
     Dates: start: 201109
  2. ANTIHYPERTENSIVES [Concomitant]
     Indication: HYPERTENSION
     Dosage: UNK UKN, UNK
     Route: 048
  3. TEGRETOL [Concomitant]
     Indication: MIGRAINE
     Dosage: UNK UKN, UNK
     Route: 048
  4. CLOPIDOGREL [Concomitant]

REACTIONS (6)
  - Cardiac failure [Fatal]
  - Hypertension [Fatal]
  - Hypophagia [Fatal]
  - Electrolyte imbalance [Fatal]
  - Asthenia [Fatal]
  - Cerebrovascular accident [Fatal]
